APPROVED DRUG PRODUCT: SEASONIQUE
Active Ingredient: ETHINYL ESTRADIOL; LEVONORGESTREL
Strength: 0.03MG,0.01MG;0.15MG,N/A
Dosage Form/Route: TABLET;ORAL
Application: N021840 | Product #001 | TE Code: AB
Applicant: TEVA BRANDED PHARMACEUTICAL PRODUCTS R AND D INC
Approved: May 25, 2006 | RLD: Yes | RS: Yes | Type: RX

PATENTS:
Patent 7855190 | Expires: Dec 5, 2028